FAERS Safety Report 12185855 (Version 1)
Quarter: 2016Q1

REPORT INFORMATION
  Report Type: Other
  Country: PT (occurrence: PT)
  Receive Date: 20160317
  Receipt Date: 20160317
  Transmission Date: 20160526
  Serious: Yes (Congenital Anomaly, Other)
  Sender: FDA-Public Use
  Company Number: PT-HETERO LABS LTD-1049229

PATIENT
  Sex: Female
  Weight: 2.67 kg

DRUGS (1)
  1. LEVETIRACETAM. [Suspect]
     Active Substance: LEVETIRACETAM
     Indication: PRODUCT USED FOR UNKNOWN INDICATION
     Route: 065

REACTIONS (2)
  - Amniotic band syndrome [Unknown]
  - Maternal exposure during pregnancy [Unknown]
